FAERS Safety Report 6196287-8 (Version None)
Quarter: 2009Q2

REPORT INFORMATION
  Report Type: 
  Country: None (occurrence: None)
  Receive Date: 20090515
  Receipt Date: 20081216
  Transmission Date: 20091009
  Serious: No
  Sender: FDA-Public Use
  Company Number: 08-236

PATIENT
  Age: 48 Year
  Sex: Female

DRUGS (4)
  1. FAZACLO ODT [Suspect]
     Dosage: 400 MG DAILY PO
     Route: 048
  2. VALPROIC ACID [Concomitant]
  3. STOOL SOFTENER [Concomitant]
  4. THYROID MEDICATION [Concomitant]

REACTIONS (2)
  - SLEEP TALKING [None]
  - SOMNAMBULISM [None]
